FAERS Safety Report 24270182 (Version 1)
Quarter: 2024Q3

REPORT INFORMATION
  Report Type: Spontaneous
  Country: US (occurrence: US)
  Receive Date: 20240830
  Receipt Date: 20240830
  Transmission Date: 20241017
  Serious: No
  Sender: AMGEN
  Company Number: US-AMGEN-USASP2024170570

PATIENT
  Age: 60 Year
  Sex: Male

DRUGS (2)
  1. REPATHA [Suspect]
     Active Substance: EVOLOCUMAB
     Indication: Blood cholesterol abnormal
     Dosage: 140 MILLIGRAM, Q2WK
     Route: 065
     Dates: start: 20240812
  2. REPATHA [Suspect]
     Active Substance: EVOLOCUMAB
     Indication: Cardiac operation

REACTIONS (3)
  - Device difficult to use [Unknown]
  - Drug dose omission by device [Unknown]
  - Product communication issue [Unknown]

NARRATIVE: CASE EVENT DATE: 20240826
